FAERS Safety Report 9706596 (Version 1)
Quarter: 2013Q4

REPORT INFORMATION
  Report Type: Spontaneous
  Country: US (occurrence: US)
  Receive Date: 20131125
  Receipt Date: 20131125
  Transmission Date: 20140711
  Serious: Yes (Hospitalization)
  Sender: FDA-Public Use
  Company Number: US-AMGEN-USASP2013082610

PATIENT
  Age: 54 Year
  Sex: Male

DRUGS (2)
  1. ENBREL [Suspect]
     Indication: PSORIASIS
     Dosage: 50 MG, QWK
     Route: 065
     Dates: start: 20011119, end: 201307
  2. ENBREL [Suspect]
     Indication: GOUT

REACTIONS (3)
  - Rash generalised [Unknown]
  - Cellulitis [Unknown]
  - Weight decreased [Not Recovered/Not Resolved]
